FAERS Safety Report 4349404-6 (Version None)
Quarter: 2004Q2

REPORT INFORMATION
  Report Type: 
  Country: None (occurrence: None)
  Receive Date: 20040428
  Receipt Date: 20040422
  Transmission Date: 20050107
  Serious: Yes (Hospitalization)
  Sender: FDA-Public Use
  Company Number: FR-GLAXOSMITHKLINE-B0330899A

PATIENT
  Age: 21 Year
  Sex: Female

DRUGS (11)
  1. CLAMOXYL [Suspect]
     Indication: PHARYNGITIS
     Route: 048
     Dates: start: 20040328, end: 20040330
  2. ZINNAT [Suspect]
     Indication: PHARYNGITIS
     Route: 048
     Dates: start: 20031229
  3. IBUPROFENE [Concomitant]
     Indication: PHARYNGITIS
     Route: 065
     Dates: start: 20031229
  4. PIVALONE [Concomitant]
     Indication: PHARYNGITIS
     Route: 065
     Dates: start: 20031229
  5. CALYPTOL [Concomitant]
     Indication: PHARYNGITIS
     Route: 055
     Dates: start: 20031229
  6. AERIUS [Concomitant]
     Route: 048
     Dates: start: 20040210
  7. RHINOCORT [Concomitant]
     Route: 055
     Dates: start: 20040210
  8. JOSACINE [Concomitant]
     Route: 048
     Dates: start: 20040330
  9. PRIMPERAN INJ [Concomitant]
     Indication: VOMITING
     Route: 048
     Dates: start: 20040330
  10. OMEPRAZOLE [Concomitant]
     Route: 048
     Dates: start: 20040330
  11. ACETAMINOPHEN [Concomitant]
     Route: 048
     Dates: start: 20040322

REACTIONS (11)
  - ABDOMINAL PAIN [None]
  - ABDOMINAL PAIN UPPER [None]
  - ALANINE AMINOTRANSFERASE INCREASED [None]
  - ASPARTATE AMINOTRANSFERASE INCREASED [None]
  - CONSTIPATION [None]
  - GAMMA-GLUTAMYLTRANSFERASE INCREASED [None]
  - INFECTIOUS MONONUCLEOSIS [None]
  - INFLAMMATION [None]
  - RASH ERYTHEMATOUS [None]
  - VOMITING [None]
  - WEIGHT DECREASED [None]
